FAERS Safety Report 25265596 (Version 4)
Quarter: 2025Q2

REPORT INFORMATION
  Report Type: Spontaneous
  Country: US (occurrence: US)
  Receive Date: 20250503
  Receipt Date: 20250604
  Transmission Date: 20250717
  Serious: No
  Sender: UNITED THERAPEUTICS
  Company Number: US-UNITED THERAPEUTICS-UNT-2025-014988

PATIENT
  Age: 84 Year
  Sex: Female
  Weight: 60.317 kg

DRUGS (20)
  1. TYVASO DPI [Suspect]
     Active Substance: TREPROSTINIL
     Indication: Pulmonary arterial hypertension
  2. TYVASO DPI [Suspect]
     Active Substance: TREPROSTINIL
     Indication: Lung disorder
     Dosage: 48 ?G, QID
     Dates: start: 20250423
  3. TYVASO DPI [Suspect]
     Active Substance: TREPROSTINIL
     Indication: Hypoxia
  4. TYVASO DPI [Suspect]
     Active Substance: TREPROSTINIL
     Indication: Pulmonary arterial hypertension
  5. TYVASO DPI [Suspect]
     Active Substance: TREPROSTINIL
     Indication: Lung disorder
  6. TYVASO DPI [Suspect]
     Active Substance: TREPROSTINIL
     Indication: Hypoxia
  7. TYVASO DPI [Suspect]
     Active Substance: TREPROSTINIL
     Indication: Pulmonary arterial hypertension
  8. TYVASO DPI [Suspect]
     Active Substance: TREPROSTINIL
     Indication: Lung disorder
  9. TYVASO DPI [Suspect]
     Active Substance: TREPROSTINIL
     Indication: Hypoxia
  10. TYVASO DPI [Suspect]
     Active Substance: TREPROSTINIL
     Indication: Pulmonary arterial hypertension
  11. TYVASO DPI [Suspect]
     Active Substance: TREPROSTINIL
     Indication: Lung disorder
  12. TYVASO DPI [Suspect]
     Active Substance: TREPROSTINIL
     Indication: Hypoxia
  13. COLACE [Concomitant]
     Active Substance: DOCUSATE SODIUM
     Indication: Product used for unknown indication
  14. PEPCID [Concomitant]
     Active Substance: FAMOTIDINE
     Indication: Product used for unknown indication
  15. PROBIOTICS NOS [Concomitant]
     Active Substance: PROBIOTICS NOS
     Indication: Product used for unknown indication
  16. METOPROLOL TARTRATE [Concomitant]
     Active Substance: METOPROLOL TARTRATE
     Indication: Product used for unknown indication
  17. VITAMINS [Concomitant]
     Active Substance: VITAMINS
     Indication: Product used for unknown indication
  18. VITAMIN D3 [Concomitant]
     Active Substance: CHOLECALCIFEROL
     Indication: Product used for unknown indication
  19. FARXIGA [Concomitant]
     Active Substance: DAPAGLIFLOZIN PROPANEDIOL
     Indication: Product used for unknown indication
  20. PROZAC [Concomitant]
     Active Substance: FLUOXETINE HYDROCHLORIDE
     Indication: Product used for unknown indication

REACTIONS (12)
  - Fatigue [Unknown]
  - Dizziness [Unknown]
  - Anxiety [Unknown]
  - Mental disorder [Unknown]
  - Dyspnoea [Unknown]
  - Productive cough [Unknown]
  - Cough [Not Recovered/Not Resolved]
  - Hypoxia [Unknown]
  - Lung disorder [Unknown]
  - Therapy non-responder [Unknown]
  - Off label use [Unknown]
  - Product use complaint [Unknown]

NARRATIVE: CASE EVENT DATE: 20250401
